FAERS Safety Report 22279530 (Version 1)
Quarter: 2023Q2

REPORT INFORMATION
  Report Type: Spontaneous
  Country: CA (occurrence: CA)
  Receive Date: 20230503
  Receipt Date: 20230503
  Transmission Date: 20230722
  Serious: Yes (Life-Threatening)
  Sender: FDA-Public Use
  Company Number: CA-PFIZER INC-202300175469

PATIENT
  Age: 4 Year
  Sex: Female

DRUGS (7)
  1. METHOTREXATE SODIUM [Suspect]
     Active Substance: METHOTREXATE SODIUM
     Dosage: 12 MG
     Route: 042
  2. VINCRISTINE SULFATE [Suspect]
     Active Substance: VINCRISTINE SULFATE
     Indication: B precursor type acute leukaemia
     Dosage: 1 MG
     Route: 042
  3. DEXAMETHASONE [Concomitant]
     Active Substance: DEXAMETHASONE
  4. FENTANYL [Concomitant]
     Active Substance: FENTANYL
  5. PENTAMIDINE ISETHIONATE [Concomitant]
     Active Substance: PENTAMIDINE ISETHIONATE
  6. PROPOFOL [Concomitant]
     Active Substance: PROPOFOL
     Route: 065
  7. PURINETHOL [Concomitant]
     Active Substance: MERCAPTOPURINE

REACTIONS (1)
  - Febrile neutropenia [Recovered/Resolved]
